FAERS Safety Report 22825187 (Version 3)
Quarter: 2024Q3

REPORT INFORMATION
  Report Type: Report from Study
  Country: US (occurrence: US)
  Receive Date: 20230816
  Receipt Date: 20240831
  Transmission Date: 20241017
  Serious: No
  Sender: NOVARTIS
  Company Number: US-SANDOZ-SDZ2023US013965

PATIENT
  Sex: Female

DRUGS (5)
  1. ENTRESTO [Suspect]
     Active Substance: SACUBITRIL\VALSARTAN
     Indication: Product used for unknown indication
     Dosage: 24/26 MG, BID
     Route: 048
  2. ENTRESTO [Suspect]
     Active Substance: SACUBITRIL\VALSARTAN
     Dosage: 49/51 MGS, BID
     Route: 048
  3. ENTRESTO [Suspect]
     Active Substance: SACUBITRIL\VALSARTAN
     Dosage: 24/26 MG, BID
     Route: 048
  4. CARVEDILOL [Suspect]
     Active Substance: CARVEDILOL
     Indication: Product used for unknown indication
     Dosage: UNK
     Route: 065
  5. VITAMIN D NOS [Concomitant]
     Active Substance: CHOLECALCIFEROL\ERGOCALCIFEROL
     Indication: Product used for unknown indication
     Dosage: UNK
     Route: 065

REACTIONS (14)
  - Dizziness [Recovering/Resolving]
  - Migraine [Unknown]
  - Hypertension [Unknown]
  - COVID-19 [Unknown]
  - Pyrexia [Unknown]
  - Onychoclasis [Unknown]
  - Pain [Unknown]
  - Hypoaesthesia [Unknown]
  - Heat exhaustion [Unknown]
  - Productive cough [Unknown]
  - Concomitant disease aggravated [Unknown]
  - Arthralgia [Unknown]
  - Headache [Recovering/Resolving]
  - Dyspnoea [Unknown]
